FAERS Safety Report 16393400 (Version 2)
Quarter: 2019Q2

REPORT INFORMATION
  Report Type: Report from Study
  Country: US (occurrence: US)
  Receive Date: 20190605
  Receipt Date: 20190612
  Transmission Date: 20190711
  Serious: Yes (Hospitalization, Other)
  Sender: FDA-Public Use
  Company Number: US-GILEAD-2019-0405470

PATIENT
  Age: 64 Year
  Sex: Female

DRUGS (4)
  1. TYVASO [Concomitant]
     Active Substance: TREPROSTINIL
     Indication: PRODUCT USED FOR UNKNOWN INDICATION
     Route: 065
  2. ALYQ [Concomitant]
     Active Substance: TADALAFIL
  3. VANCOMYCIN [Concomitant]
     Active Substance: VANCOMYCIN
  4. AMBRISENTAN [Suspect]
     Active Substance: AMBRISENTAN
     Indication: PULMONARY HYPERTENSION
     Dosage: 10 MG, QD
     Route: 065
     Dates: start: 20180813

REACTIONS (9)
  - Asthma [Unknown]
  - Wheezing [Unknown]
  - Diarrhoea [Not Recovered/Not Resolved]
  - Fluid overload [Unknown]
  - Throat irritation [Unknown]
  - Headache [Unknown]
  - Anaemia [Unknown]
  - Oropharyngeal discomfort [Unknown]
  - Cough [Unknown]

NARRATIVE: CASE EVENT DATE: 20190422
